FAERS Safety Report 5510523-X (Version None)
Quarter: 2007Q4

REPORT INFORMATION
  Report Type: 
  Country: None (occurrence: None)
  Receive Date: 20071108
  Receipt Date: 20071106
  Transmission Date: 20080405
  Serious: Yes (Other)
  Sender: FDA-Public Use
  Company Number: US-ROXANE LABORATORIES, INC-2007-DE-06457GD

PATIENT
  Sex: Female
  Weight: 75 kg

DRUGS (6)
  1. MORPHINE [Suspect]
     Indication: PAIN
  2. MORPHINE [Suspect]
     Indication: POST HERPETIC NEURALGIA
  3. LIDOCAINE [Suspect]
     Indication: PAIN
     Dosage: THREE 5% PATCHES WORN 12 HOURS ON, 12 HOURS OFF TO AFFECTED AREAS
     Route: 062
  4. LIDOCAINE [Suspect]
     Indication: POST HERPETIC NEURALGIA
  5. GABAPENTIN [Suspect]
     Indication: PAIN
  6. GABAPENTIN [Suspect]
     Indication: POST HERPETIC NEURALGIA

REACTIONS (1)
  - DRUG INEFFECTIVE [None]
